FAERS Safety Report 8301660-5 (Version None)
Quarter: 2012Q2

REPORT INFORMATION
  Report Type: 
  Country: None (occurrence: None)
  Receive Date: 20120420
  Receipt Date: 20120413
  Transmission Date: 20120825
  Serious: Yes (Hospitalization, Other)
  Sender: FDA-Public Use
  Company Number: TR-UCBSA-053651

PATIENT
  Age: 43 Year
  Sex: Male

DRUGS (2)
  1. KEPPRA [Suspect]
     Dosage: TOOK APPOXIMATELY 21 G
     Dates: start: 20120315
  2. KEPPRA [Suspect]
     Dates: start: 20120312, end: 20120314

REACTIONS (2)
  - POISONING [None]
  - OVERDOSE [None]
